FAERS Safety Report 6182129-3 (Version None)
Quarter: 2009Q2

REPORT INFORMATION
  Report Type: 
  Country: None (occurrence: None)
  Receive Date: 20090507
  Receipt Date: 20090430
  Transmission Date: 20091009
  Serious: Yes (Hospitalization)
  Sender: FDA-Public Use
  Company Number: US-JNJFOC-20090500640

PATIENT
  Age: 94 Year
  Sex: Female
  Weight: 38.56 kg

DRUGS (3)
  1. IMODIUM A-D [Suspect]
     Route: 048
  2. IMODIUM A-D [Suspect]
     Indication: DIARRHOEA
     Dosage: 1-2 DOSES, 1-2 TIMES A DAY, AS NEEDED
     Route: 048
  3. OTHER MEDICATIONS FOR IBS [Concomitant]
     Indication: IRRITABLE BOWEL SYNDROME

REACTIONS (1)
  - CONSTIPATION [None]
